FAERS Safety Report 6390134-7 (Version None)
Quarter: 2009Q4

REPORT INFORMATION
  Report Type: 
  Country: None (occurrence: None)
  Receive Date: 20091003
  Receipt Date: 20090923
  Transmission Date: 20100525
  Serious: Yes (Other)
  Sender: FDA-Public Use
  Company Number: 2009US003557

PATIENT
  Age: 64 Year
  Sex: Female

DRUGS (1)
  1. LEXISCAN [Suspect]
     Indication: SCAN MYOCARDIAL PERFUSION
     Dosage: UNK, UNK, IV NOS
     Route: 042

REACTIONS (6)
  - DIZZINESS [None]
  - IMMEDIATE POST-INJECTION REACTION [None]
  - PAIN IN EXTREMITY [None]
  - PARAESTHESIA [None]
  - PROCEDURAL HYPERTENSION [None]
  - PROCEDURAL NAUSEA [None]
